FAERS Safety Report 13236978 (Version 1)
Quarter: 2017Q1

REPORT INFORMATION
  Report Type: Spontaneous
  Country: DE (occurrence: DE)
  Receive Date: 20170215
  Receipt Date: 20170215
  Transmission Date: 20170428
  Serious: Yes (Other)
  Sender: FDA-Public Use
  Company Number: DE-TEVA-739504GER

PATIENT
  Sex: Female

DRUGS (2)
  1. PANTOPRAZOL PUREN 20 MG MAGENSAFTRESISTENTE TABLETTEN [Suspect]
     Active Substance: PANTOPRAZOLE SODIUM
     Dosage: 20 MILLIGRAM DAILY;
     Route: 048
     Dates: start: 2015
  2. BISOPROLOL ABZ 2.5 MG [Concomitant]
     Indication: CARDIAC FAILURE
     Dosage: 2.5 MILLIGRAM DAILY; 0.5-0-0.5
     Route: 048
     Dates: start: 2015

REACTIONS (3)
  - Loss of consciousness [Not Recovered/Not Resolved]
  - Diarrhoea [Not Recovered/Not Resolved]
  - Vomiting [Not Recovered/Not Resolved]

NARRATIVE: CASE EVENT DATE: 2015
